FAERS Safety Report 8847033 (Version 1)
Quarter: 2012Q4

REPORT INFORMATION
  Report Type: Spontaneous
  Country: JP (occurrence: None)
  Receive Date: 20121016
  Receipt Date: 20121016
  Transmission Date: 20130627
  Serious: Yes (Hospitalization)
  Sender: FDA-Public Use
  Company Number: US-2012-10977

PATIENT
  Age: 57 Year
  Sex: Male
  Weight: 68 kg

DRUGS (7)
  1. CILOSTAZOL [Suspect]
  2. SODIUM THIOSULFATE [Suspect]
     Indication: CRITICAL LIMB ISCHEMIA
     Route: 042
  3. A;PROSTADIL (ALPROSTADIL) [Concomitant]
  4. BERAPROST (BERAPROST) [Concomitant]
  5. TOCOPHEROL (TOCOPHERYL ACETATE) [Concomitant]
  6. CALCIUM CARBONATE (CALCIUM CARBONATE) [Concomitant]
  7. MAXACALCITOL (MAXACALCITOL) [Concomitant]

REACTIONS (3)
  - Peripheral ischaemia [None]
  - Vascular calcification [None]
  - Skin ulcer [None]
